FAERS Safety Report 6665426-4 (Version None)
Quarter: 2010Q1

REPORT INFORMATION
  Report Type: 
  Country: None (occurrence: None)
  Receive Date: 20100330
  Receipt Date: 20100318
  Transmission Date: 20100710
  Serious: Yes (Other)
  Sender: FDA-Public Use
  Company Number: 8037321

PATIENT
  Sex: Female
  Weight: 7.5 kg

DRUGS (5)
  1. KEPPRA [Suspect]
     Dosage: 1000 MG DOSE FREQ.: TRANSPLACENTAL, 1000 MG, DOSE FREQ.: DAILY TRANSMAMMARY
     Route: 064
     Dates: start: 20070905
  2. FOLIC ACID [Concomitant]
  3. PRENATAL VITAMINS /01549301/ [Concomitant]
  4. CRANBERRY /01512301/ [Concomitant]
  5. FISH OIL [Concomitant]

REACTIONS (3)
  - DRUG EXPOSURE DURING PREGNANCY [None]
  - DRUG EXPOSURE VIA BREAST MILK [None]
  - FAILURE TO THRIVE [None]
